FAERS Safety Report 8339455-9 (Version None)
Quarter: 2012Q2

REPORT INFORMATION
  Report Type: 
  Country: None (occurrence: None)
  Receive Date: 20120507
  Receipt Date: 20120430
  Transmission Date: 20120825
  Serious: Yes (Other)
  Sender: FDA-Public Use
  Company Number: US-UCBSA-056523

PATIENT
  Age: 27 Year
  Sex: Male

DRUGS (1)
  1. VIMPAT [Suspect]
     Indication: CONVULSION
     Dosage: STRENGTH: 150 MG

REACTIONS (3)
  - CEREBROVASCULAR ACCIDENT [None]
  - BLINDNESS [None]
  - CONVULSION [None]
